FAERS Safety Report 4608947-8 (Version None)
Quarter: 2005Q1

REPORT INFORMATION
  Report Type: 
  Country: None (occurrence: None)
  Receive Date: 20050311
  Receipt Date: 20050225
  Transmission Date: 20050727
  Serious: Yes (Other)
  Sender: FDA-Public Use
  Company Number: 2001-BP-00888

PATIENT
  Age: 26 Year
  Sex: Female

DRUGS (3)
  1. VIRAMUNE [Suspect]
     Indication: HIV INFECTION
     Dosage: 400 MG (200 MG, 2 IN 1 D), PO
     Route: 048
     Dates: start: 19990916, end: 20000401
  2. STAVUDINE [Concomitant]
  3. EMTRICITABINE [Concomitant]

REACTIONS (6)
  - DRUG EXPOSURE DURING PREGNANCY [None]
  - ESCHERICHIA URINARY TRACT INFECTION [None]
  - INTRA-UTERINE DEATH [None]
  - IRON DEFICIENCY ANAEMIA [None]
  - PREGNANCY [None]
  - UPPER RESPIRATORY TRACT INFECTION [None]
